FAERS Safety Report 5491265-6 (Version None)
Quarter: 2007Q4

REPORT INFORMATION
  Report Type: 
  Country: None (occurrence: None)
  Receive Date: 20071017
  Receipt Date: 20071005
  Transmission Date: 20080405
  Serious: Yes (Life-Threatening)
  Sender: FDA-Public Use
  Company Number: T07-JPN-05418-01

PATIENT
  Age: 77 Year
  Sex: Female
  Weight: 37 kg

DRUGS (6)
  1. MEMANTINE HCL [Suspect]
     Indication: DEMENTIA ALZHEIMER'S TYPE
     Dates: end: 20071004
  2. MEMANTINE HCL [Suspect]
     Indication: DEMENTIA ALZHEIMER'S TYPE
     Dates: start: 20070406, end: 20070503
  3. REBAMIPIDE [Concomitant]
  4. DOMPERIDONE [Concomitant]
  5. VERAPAMIL HYDROCHLORIDE [Concomitant]
  6. SENNOSIDE [Concomitant]

REACTIONS (1)
  - GASTRIC CANCER [None]
